FAERS Safety Report 5305349-6 (Version None)
Quarter: 2007Q2

REPORT INFORMATION
  Report Type: 
  Country: None (occurrence: None)
  Receive Date: 20070424
  Receipt Date: 20070413
  Transmission Date: 20071010
  Serious: Yes (Other)
  Sender: FDA-Public Use
  Company Number: PHBS2007IT06606

PATIENT
  Age: 74 Year
  Sex: Female

DRUGS (3)
  1. AREDIA [Suspect]
     Indication: METASTASES TO BONE
     Dates: start: 20040701, end: 20041001
  2. ZOMETA [Suspect]
     Indication: METASTASES TO BONE
     Dates: start: 20041001
  3. DOXORUBICIN HCL [Concomitant]
     Indication: CHEMOTHERAPY

REACTIONS (6)
  - BONE DISORDER [None]
  - LIP PAIN [None]
  - LYMPHOCYTIC INFILTRATION [None]
  - MOUTH ULCERATION [None]
  - OSTEITIS [None]
  - OSTEONECROSIS [None]
